FAERS Safety Report 25100508 (Version 1)
Quarter: 2025Q1

REPORT INFORMATION
  Report Type: Spontaneous
  Country: AU (occurrence: AU)
  Receive Date: 20250320
  Receipt Date: 20250320
  Transmission Date: 20250408
  Serious: Yes (Hospitalization, Other)
  Sender: CIPLA
  Company Number: AU-CIPLA (EU) LIMITED-2025AU03251

PATIENT

DRUGS (13)
  1. ACETAMINOPHEN [Suspect]
     Active Substance: ACETAMINOPHEN
     Indication: Cancer pain
     Dosage: 1 GRAM, QID (TOTAL 4 GRAM)
     Route: 065
  2. PREGABALIN [Suspect]
     Active Substance: PREGABALIN
     Indication: Cancer pain
     Dosage: 150 MILLIGRAM, BID
     Route: 065
  3. OXYCODONE [Suspect]
     Active Substance: OXYCODONE
     Indication: Cancer pain
     Dosage: 100 MILLIGRAM, BID
     Route: 065
  4. GABAPENTIN [Suspect]
     Active Substance: GABAPENTIN
     Indication: Cancer pain
     Dosage: 300 MILLIGRAM, TID
     Route: 065
  5. FENTANYL [Suspect]
     Active Substance: FENTANYL
     Indication: Cancer pain
     Route: 065
  6. PARECOXIB [Suspect]
     Active Substance: PARECOXIB
     Indication: Cancer pain
     Dosage: 40 MILLIGRAM, QD
     Route: 065
  7. KETAMINE [Suspect]
     Active Substance: KETAMINE
     Indication: Cancer pain
     Dosage: 500 MILLIGRAM, QD
     Route: 065
  8. MORPHINE SULFATE [Suspect]
     Active Substance: MORPHINE SULFATE
     Indication: Cancer pain
     Dosage: 150 MILLIGRAM, BID (300 MG QD)
     Route: 065
  9. LIDOCAINE [Suspect]
     Active Substance: LIDOCAINE
     Indication: Cancer pain
     Dosage: 5 PERCENT, QD
     Route: 065
  10. IPILIMUMAB [Concomitant]
     Active Substance: IPILIMUMAB
     Indication: Pleural mesothelioma malignant
     Route: 065
  11. NIVOLUMAB [Concomitant]
     Active Substance: NIVOLUMAB
     Indication: Pleural mesothelioma malignant
     Route: 065
  12. CISPLATIN [Concomitant]
     Active Substance: CISPLATIN
     Indication: Pleural mesothelioma malignant
     Route: 065
  13. PEMETREXED [Concomitant]
     Active Substance: PEMETREXED
     Indication: Pleural mesothelioma malignant
     Route: 065

REACTIONS (4)
  - Cognitive disorder [Unknown]
  - Neurotoxicity [Unknown]
  - Drug intolerance [Unknown]
  - Therapeutic product effect incomplete [Unknown]
